FAERS Safety Report 15416195 (Version 3)
Quarter: 2018Q4

REPORT INFORMATION
  Report Type: Spontaneous
  Country: US (occurrence: US)
  Receive Date: 20180923
  Receipt Date: 20181128
  Transmission Date: 20190204
  Serious: Yes (Hospitalization, Other)
  Sender: FDA-Public Use
  Company Number: US-BIOGEN-2018BI00633894

PATIENT
  Sex: Female

DRUGS (2)
  1. AVONEX [Suspect]
     Active Substance: INTERFERON BETA-1A
     Route: 030
     Dates: start: 20180719
  2. AVONEX [Suspect]
     Active Substance: INTERFERON BETA-1A
     Indication: MULTIPLE SCLEROSIS
     Route: 030
     Dates: start: 19970101, end: 20171231

REACTIONS (8)
  - Retinal disorder [Unknown]
  - Balance disorder [Unknown]
  - Mental disorder [Unknown]
  - Urinary tract infection [Recovered/Resolved]
  - Syncope [Unknown]
  - Alopecia [Unknown]
  - Multiple sclerosis relapse [Unknown]
  - Blindness unilateral [Unknown]
